FAERS Safety Report 6830590-0 (Version None)
Quarter: 2010Q3

REPORT INFORMATION
  Report Type: 
  Country: None (occurrence: None)
  Receive Date: 20100706
  Receipt Date: 20100623
  Transmission Date: 20110219
  Serious: Yes (Death, Hospitalization)
  Sender: FDA-Public Use
  Company Number: 2010AC000195

PATIENT
  Age: 72 Year
  Sex: Female

DRUGS (7)
  1. DIGOXIN [Suspect]
     Dosage: 0.125 MG; QD; PO
     Route: 048
     Dates: start: 20071101
  2. PREDNISONE [Concomitant]
  3. REGLAN [Concomitant]
  4. MULTI-VITAMIN [Concomitant]
  5. PHENERGAN [Concomitant]
  6. METHOTREXATE [Concomitant]
  7. SPIRONOLAMONE [Concomitant]

REACTIONS (27)
  - ADVERSE EVENT [None]
  - ANGINA UNSTABLE [None]
  - AORTIC VALVE DISEASE [None]
  - ARRHYTHMIA [None]
  - ARTERIOSCLEROSIS CORONARY ARTERY [None]
  - ATRIAL FIBRILLATION [None]
  - CARDIAC FAILURE [None]
  - CARDIAC FAILURE CONGESTIVE [None]
  - CONSTIPATION [None]
  - DEHYDRATION [None]
  - DIABETES MELLITUS [None]
  - DYSPNOEA [None]
  - ECONOMIC PROBLEM [None]
  - HYPERTENSION [None]
  - IMPAIRED GASTRIC EMPTYING [None]
  - MALNUTRITION [None]
  - MULTIPLE INJURIES [None]
  - MYOCARDIAL ISCHAEMIA [None]
  - NAUSEA [None]
  - NEPHROTIC SYNDROME [None]
  - OBESITY [None]
  - OSTEOARTHRITIS [None]
  - RHEUMATOID ARTHRITIS [None]
  - SEPSIS [None]
  - UNEVALUABLE EVENT [None]
  - VOMITING [None]
  - WHITE BLOOD CELL COUNT INCREASED [None]
